FAERS Safety Report 6307403-9 (Version None)
Quarter: 2009Q3

REPORT INFORMATION
  Report Type: 
  Country: None (occurrence: None)
  Receive Date: 20090810
  Receipt Date: 20081103
  Transmission Date: 20100115
  Serious: Yes (Other)
  Sender: FDA-Public Use
  Company Number: US-JNJFOC-20081101031

PATIENT
  Age: 6 Year
  Sex: Male

DRUGS (3)
  1. IBUPROFEN [Suspect]
     Indication: UPPER RESPIRATORY TRACT INFECTION
  2. PSEUDOEPHEDRINE HCL [Suspect]
     Indication: UPPER RESPIRATORY TRACT INFECTION
  3. ACETAMINOPHEN [Concomitant]

REACTIONS (1)
  - HYPERSENSITIVITY [None]
